FAERS Safety Report 10026415 (Version 1)
Quarter: 2014Q1

REPORT INFORMATION
  Report Type: Spontaneous
  Country: US (occurrence: US)
  Receive Date: 20140321
  Receipt Date: 20140321
  Transmission Date: 20141002
  Serious: Yes (Hospitalization)
  Sender: FDA-Public Use
  Company Number: US-ROCHE-1364595

PATIENT
  Age: 87 Year
  Sex: Female

DRUGS (8)
  1. BONIVA [Suspect]
     Indication: PRODUCT USED FOR UNKNOWN INDICATION
     Route: 048
  2. ASPIRIN [Concomitant]
     Route: 048
  3. LOVENOX [Concomitant]
     Route: 065
  4. LASIX [Concomitant]
     Dosage: EVERY OTHER DAY
     Route: 048
  5. SYNTHROID [Concomitant]
     Route: 048
  6. TOPROL [Concomitant]
     Route: 048
  7. SENNA [Concomitant]
     Route: 048
  8. ZOCOR [Concomitant]
     Dosage: AT BEDTIME
     Route: 048

REACTIONS (2)
  - Fractured sacrum [Unknown]
  - Ilium fracture [Unknown]
